FAERS Safety Report 13871156 (Version 1)
Quarter: 2017Q3

REPORT INFORMATION
  Report Type: Spontaneous
  Country: US (occurrence: US)
  Receive Date: 20170816
  Receipt Date: 20170816
  Transmission Date: 20171127
  Serious: Yes (Hospitalization)
  Sender: FDA-Public Use
  Company Number: US-ELI_LILLY_AND_COMPANY-US201708005927

PATIENT
  Age: 63 Year
  Sex: Male
  Weight: 82 kg

DRUGS (7)
  1. TENORMIN [Concomitant]
     Active Substance: ATENOLOL
     Indication: ACUTE CORONARY SYNDROME
     Dosage: 25 MG, DAILY
     Route: 048
     Dates: start: 20150321
  2. TAHOR [Concomitant]
     Active Substance: ATORVASTATIN CALCIUM
     Indication: ACUTE CORONARY SYNDROME
     Dosage: 80 MG, DAILY
     Route: 048
     Dates: start: 20150321
  3. TAREG [Concomitant]
     Active Substance: VALSARTAN
     Indication: ACUTE CORONARY SYNDROME
     Dosage: 40 MG, DAILY
     Route: 048
     Dates: start: 20150625
  4. EFFIENT [Suspect]
     Active Substance: PRASUGREL HYDROCHLORIDE
     Indication: ACUTE CORONARY SYNDROME
     Dosage: 10 MG, DAILY
     Route: 048
     Dates: start: 20150828
  5. KARDEGIC [Concomitant]
     Active Substance: ASPIRIN LYSINE
     Indication: ACUTE CORONARY SYNDROME
     Dosage: 75 MG, DAILY
     Route: 048
     Dates: start: 20150321
  6. INEXIUM                            /01479302/ [Concomitant]
     Active Substance: ESOMEPRAZOLE MAGNESIUM
     Indication: ACUTE CORONARY SYNDROME
     Dosage: 20 MG, DAILY
     Route: 048
     Dates: start: 20150321
  7. BRILIQUE [Concomitant]
     Active Substance: TICAGRELOR
     Indication: ACUTE CORONARY SYNDROME
     Dosage: 90 MG, BID
     Route: 048
     Dates: start: 20150321

REACTIONS (1)
  - Urinary bladder haemorrhage [Recovered/Resolved]

NARRATIVE: CASE EVENT DATE: 20150901
